FAERS Safety Report 5572846-8 (Version None)
Quarter: 2007Q4

REPORT INFORMATION
  Report Type: 
  Country: None (occurrence: None)
  Receive Date: 20071223
  Receipt Date: 20071219
  Transmission Date: 20080405
  Serious: Yes (Hospitalization)
  Sender: FDA-Public Use
  Company Number: PHHO2006GB18348

PATIENT
  Age: 70 Year
  Sex: Male
  Weight: 67.5 kg

DRUGS (4)
  1. NATEGLINIDE [Suspect]
     Indication: GLUCOSE TOLERANCE IMPAIRED
     Dosage: LEVEL 1
     Route: 048
     Dates: start: 20030924
  2. NATEGLINIDE [Suspect]
     Dosage: LEVEL 2
     Route: 048
  3. VALSARTAN [Suspect]
     Indication: CARDIOVASCULAR DISORDER
     Dosage: NO TREATMENT
     Dates: end: 20060419
  4. VALSARTAN [Suspect]
     Dosage: CODE NOT BROKEN
     Route: 048
     Dates: start: 20030924

REACTIONS (1)
  - RENAL FAILURE CHRONIC [None]
